FAERS Safety Report 8130032-1 (Version None)
Quarter: 2012Q1

REPORT INFORMATION
  Report Type: 
  Country: None (occurrence: None)
  Receive Date: 20120210
  Receipt Date: 20120130
  Transmission Date: 20120608
  Serious: Yes (Life-Threatening, Hospitalization, Other)
  Sender: FDA-Public Use
  Company Number: GB-ROCHE-1030637

PATIENT
  Sex: Female
  Weight: 51 kg

DRUGS (5)
  1. PREDNISOLONE [Suspect]
     Indication: JUVENILE ARTHRITIS
     Dates: start: 20110101
  2. CORTICOSTEROIDS (UNK INGREDIENTS) [Concomitant]
  3. FOLIC ACID [Concomitant]
     Dates: start: 20110310, end: 20111203
  4. METHOTREXATE [Suspect]
     Indication: JUVENILE ARTHRITIS
     Dates: start: 20110310, end: 20111203
  5. ACTEMRA [Suspect]
     Indication: JUVENILE ARTHRITIS
     Route: 042
     Dates: start: 20111108, end: 20111203

REACTIONS (6)
  - MALAISE [None]
  - PYREXIA [None]
  - INFECTION [None]
  - PNEUMONITIS [None]
  - ACUTE RESPIRATORY DISTRESS SYNDROME [None]
  - CHILLS [None]
